FAERS Safety Report 12016182 (Version 1)
Quarter: 2016Q1

REPORT INFORMATION
  Report Type: Report from Study
  Country: US (occurrence: US)
  Receive Date: 20160205
  Receipt Date: 20160205
  Transmission Date: 20160526
  Serious: No
  Sender: FDA-Public Use
  Company Number: US-AMGEN-USASP2014002234

PATIENT
  Age: 59 Year
  Sex: Female

DRUGS (42)
  1. NEULASTA [Suspect]
     Active Substance: PEGFILGRASTIM
     Indication: PRODUCT USED FOR UNKNOWN INDICATION
     Dosage: 6 MG, ONCE PER CHEMOTHERAPY CYCLE
     Route: 058
     Dates: start: 20121221
  2. AVASTIN [Suspect]
     Active Substance: BEVACIZUMAB
     Indication: METASTASES TO OVARY
     Dosage: 1025 MG, 1 IN 3 WK
     Route: 042
     Dates: start: 20021121
  3. FAMOTIDINE. [Concomitant]
     Active Substance: FAMOTIDINE
     Dosage: 20 MG, UNK
     Route: 042
     Dates: start: 20121220
  4. BENADRYL [Concomitant]
     Active Substance: DIPHENHYDRAMINE HYDROCHLORIDE
     Dosage: 25 MG, UNK
     Route: 042
     Dates: start: 20121220
  5. TAXOL [Concomitant]
     Active Substance: PACLITAXEL
     Dosage: UNK
     Route: 042
     Dates: start: 20130131
  6. COMPAZINE [Concomitant]
     Active Substance: PROCHLORPERAZINE MALEATE
     Indication: VOMITING
  7. SOLU-CORTEF [Concomitant]
     Active Substance: HYDROCORTISONE SODIUM SUCCINATE
     Dosage: 100 MG, UNK
     Route: 042
  8. CARBOPLATIN. [Concomitant]
     Active Substance: CARBOPLATIN
     Dosage: UNK
     Dates: start: 200606
  9. CARBOPLATIN. [Concomitant]
     Active Substance: CARBOPLATIN
     Dosage: 950 MG, UNK, (7.5 IN 0.9 % NACL 250 ML)
     Route: 042
     Dates: start: 20130110
  10. ADRENALINE                         /00003901/ [Concomitant]
     Active Substance: EPINEPHRINE
     Dosage: 0.5 MG, 1 AS REQUIRED
     Route: 030
  11. PROCHLORPERAZINE. [Concomitant]
     Active Substance: PROCHLORPERAZINE
     Dosage: 10 MG, 8 HOURS WHEN NECESSARY
     Route: 065
  12. DIPHENHYDRAMINE. [Concomitant]
     Active Substance: DIPHENHYDRAMINE
     Dosage: 25 MG, UNK
  13. NEULASTA [Suspect]
     Active Substance: PEGFILGRASTIM
     Dosage: 6 MG, ONCE PER CHEMOTHERAPY CYCLE
     Route: 058
     Dates: start: 20130111
  14. AVASTIN [Suspect]
     Active Substance: BEVACIZUMAB
     Dosage: 975 MG, (975 MG IN 100 ML SODIUM CHLORIDE 0.9 %)
     Route: 042
     Dates: start: 20121220
  15. PALONOSETRON HYDROCHLORIDE. [Concomitant]
     Active Substance: PALONOSETRON HYDROCHLORIDE
     Dosage: 250 MUG, UNK
     Route: 042
     Dates: start: 20121220
  16. ACETAMINOPHEN. [Concomitant]
     Active Substance: ACETAMINOPHEN
     Dosage: 650 MG, UNK
     Route: 042
  17. TAXOL [Concomitant]
     Active Substance: PACLITAXEL
     Dosage: UNK
     Dates: start: 200806, end: 200810
  18. MAGNESIUM SULFATE. [Concomitant]
     Active Substance: MAGNESIUM SULFATE
     Dosage: 5 MG, ONCE
     Route: 042
     Dates: start: 20130131
  19. MAGNESIUM SULFATE. [Concomitant]
     Active Substance: MAGNESIUM SULFATE
     Dosage: 5 MG, UNK
     Route: 042
     Dates: start: 20130314
  20. SODIUM CHLORIDE. [Concomitant]
     Active Substance: SODIUM CHLORIDE
     Dosage: 250 ML, UNK
     Route: 042
     Dates: start: 20130131
  21. AVASTIN [Suspect]
     Active Substance: BEVACIZUMAB
     Dosage: 975 MG,UNK, (100 ML SODIUM CHLORIDE)
     Route: 042
     Dates: start: 20130221
  22. AVASTIN [Suspect]
     Active Substance: BEVACIZUMAB
     Dosage: 975 MG,UNK, (975 IN 100 ML SODIUM CHLORIDE)
     Route: 042
     Dates: start: 20130314
  23. DEXAMETHASONE. [Concomitant]
     Active Substance: DEXAMETHASONE
     Dosage: 20 MG, UNK
     Route: 042
     Dates: start: 20121220
  24. HEPARIN [Concomitant]
     Active Substance: HEPARIN SODIUM
     Dosage: 500 UNITS, UNK
     Route: 042
     Dates: start: 20121220
  25. COMPAZINE [Concomitant]
     Active Substance: PROCHLORPERAZINE MALEATE
     Indication: NAUSEA
     Dosage: 10 MG, EVERY 8 HOURS PRN
     Route: 048
  26. DEXAMETHASONE. [Concomitant]
     Active Substance: DEXAMETHASONE
     Dosage: 20 MG, UNK
     Route: 042
     Dates: start: 20130131
  27. NEULASTA [Suspect]
     Active Substance: PEGFILGRASTIM
     Dosage: 6 MG, ONCE PER CHEMOTHERAPY CYCLE
     Route: 058
     Dates: start: 20130201
  28. AVASTIN [Suspect]
     Active Substance: BEVACIZUMAB
     Dosage: 975 MG, UNK, (975 MG IN 100 ML SODIUM CHLORIDE 0.9 %)
     Route: 042
     Dates: start: 20130131
  29. FAMOTIDINE. [Concomitant]
     Active Substance: FAMOTIDINE
     Dosage: 20 MG, UNK
     Route: 042
     Dates: start: 20130131
  30. MAGNESIUM SULFATE. [Concomitant]
     Active Substance: MAGNESIUM SULFATE
     Dosage: 3 MG, UNK
     Route: 042
     Dates: start: 20121220
  31. AVASTIN [Suspect]
     Active Substance: BEVACIZUMAB
     Dosage: 975 MG,UNK, (975 IN 0.9 % SODIUM CHLORIDE 100 ML)
     Route: 042
     Dates: start: 20130403
  32. AVASTIN [Suspect]
     Active Substance: BEVACIZUMAB
     Dosage: 1025 MG, UNK, (15 MG/KG IN 100 ML SODIUM CHLORIDE)
     Route: 042
     Dates: start: 20130424
  33. PALONOSETRON HYDROCHLORIDE. [Concomitant]
     Active Substance: PALONOSETRON HYDROCHLORIDE
     Dosage: 250 MG, UNK
     Route: 042
     Dates: start: 20130131
  34. SODIUM CHLORIDE. [Concomitant]
     Active Substance: SODIUM CHLORIDE
     Dosage: 250 ML, UNK
     Route: 042
     Dates: start: 2008
  35. SODIUM CHLORIDE. [Concomitant]
     Active Substance: SODIUM CHLORIDE
     Dosage: 250 ML, UNK
     Route: 042
     Dates: start: 20130314
  36. NEULASTA [Suspect]
     Active Substance: PEGFILGRASTIM
     Dosage: 6 MG, ONCE PER CHEMOTHERAPY CYCLE
     Route: 058
     Dates: start: 20130222
  37. AVASTIN [Suspect]
     Active Substance: BEVACIZUMAB
     Indication: FALLOPIAN TUBE CANCER
     Dosage: 975 MG, 1 IN 3 WK
     Route: 042
     Dates: start: 20121106
  38. AVASTIN [Suspect]
     Active Substance: BEVACIZUMAB
     Dosage: 975 MG,1 IN 3 WK, (15 MG/KG IN 0.9 % NACL 250 ML)
     Route: 042
     Dates: start: 20130110
  39. BENADRYL [Concomitant]
     Active Substance: DIPHENHYDRAMINE HYDROCHLORIDE
     Dosage: 25 MG, UNK
     Route: 042
     Dates: start: 20130131
  40. TAXOL [Concomitant]
     Active Substance: PACLITAXEL
     Dosage: 175 MG/M2 + 250 ML, UNK
     Route: 042
     Dates: start: 20130110
  41. CARBOPLATIN. [Concomitant]
     Active Substance: CARBOPLATIN
     Dosage: UNK
     Dates: start: 200806, end: 200810
  42. CARBOPLATIN. [Concomitant]
     Active Substance: CARBOPLATIN
     Dosage: 1025 UNK, UNK
     Route: 042
     Dates: start: 20121220

REACTIONS (9)
  - Asthenia [Unknown]
  - Product use issue [Unknown]
  - Vulvovaginal dryness [Unknown]
  - Bone pain [Unknown]
  - Sinus headache [Recovering/Resolving]
  - Fatigue [Unknown]
  - Dyspepsia [Recovering/Resolving]
  - Diarrhoea [Unknown]
  - Alopecia [Recovering/Resolving]

NARRATIVE: CASE EVENT DATE: 20130917
